FAERS Safety Report 8952303 (Version 1)
Quarter: 2012Q4

REPORT INFORMATION
  Report Type: 
  Country: JP (occurrence: JP)
  Receive Date: 20121205
  Receipt Date: 20121205
  Transmission Date: 20130627
  Serious: Yes (Hospitalization)
  Sender: FDA-Public Use
  Company Number: JP-009507513-2012SP004797

PATIENT
  Age: 69 Year
  Sex: Female
  Weight: 59 kg

DRUGS (14)
  1. PEGINTERFERON ALFA-2B [Suspect]
     Indication: CHRONIC HEPATITIS C
     Dosage: 1.4 Microgram per kilogram, qw
     Route: 058
     Dates: start: 20111206, end: 20120104
  2. REBETOL [Suspect]
     Indication: CHRONIC HEPATITIS C
     Dosage: 400 mg, QD
     Route: 048
     Dates: start: 20111206, end: 20120108
  3. TELAVIC [Suspect]
     Indication: CHRONIC HEPATITIS C
     Dosage: 1500 mg, qd
     Route: 048
     Dates: start: 20111206, end: 20120108
  4. DIOVAN [Concomitant]
     Indication: HYPERTENSION
     Dosage: 160 mg, qd
     Route: 048
  5. DIOVAN [Concomitant]
     Dosage: 80 mg, qd
     Route: 048
     Dates: start: 20111211
  6. AMLODIN (AMLODIPINE BESYLATE) [Concomitant]
     Indication: HYPERTENSION
     Dosage: 5 mg, qd
     Route: 048
  7. AMLODIN (AMLODIPINE BESYLATE) [Concomitant]
     Dosage: 2.5 mg, qd
     Route: 048
     Dates: start: 20111211
  8. DICLOFENAC [Concomitant]
     Dosage: 25 mg, prn
     Dates: start: 20111206, end: 20120111
  9. DOGMATYL [Concomitant]
     Dosage: 150 mg, QD
     Dates: start: 20111209, end: 20120109
  10. ZYLORIC [Concomitant]
     Indication: BLOOD URIC ACID INCREASED
     Dosage: 100 mg, qd
     Route: 048
     Dates: start: 20111209, end: 20120108
  11. SELBEX [Concomitant]
     Indication: PROPHYLAXIS
     Dosage: 150 mg, qd
     Route: 048
     Dates: start: 20111206, end: 20120109
  12. LENDORMIN [Concomitant]
     Dosage: 0.25 mg, qd
     Route: 048
     Dates: start: 20120114, end: 20120312
  13. SENNA [Concomitant]
     Indication: CONSTIPATION
     Dosage: 0.5 g, QD
     Route: 048
     Dates: start: 20120115, end: 20120312
  14. LOCHOL (FLUVASTATIN SODIUM) [Concomitant]
     Indication: CHRONIC HEPATITIS C
     Dosage: 20 mg, qd
     Route: 048
     Dates: start: 20111219, end: 20120109

REACTIONS (1)
  - Erythema multiforme [Recovering/Resolving]
